FAERS Safety Report 19363615 (Version 1)
Quarter: 2021Q2

REPORT INFORMATION
  Report Type: Spontaneous
  Country: US (occurrence: US)
  Receive Date: 20210603
  Receipt Date: 20210603
  Transmission Date: 20210717
  Serious: Yes (Death, Life-Threatening, Hospitalization, Other)
  Sender: FDA-Public Use
  Company Number: US-AMGEN-USASP2021082726

PATIENT
  Age: 86 Year
  Sex: Female

DRUGS (1)
  1. EVENITY [Suspect]
     Active Substance: ROMOSOZUMAB-AQQG
     Indication: OSTEOPOROSIS
     Dosage: UNK
     Route: 065
     Dates: end: 20210416

REACTIONS (1)
  - Myocardial infarction [Fatal]

NARRATIVE: CASE EVENT DATE: 20210427
